FAERS Safety Report 23782366 (Version 1)
Quarter: 2024Q2

REPORT INFORMATION
  Report Type: Spontaneous
  Country: US (occurrence: US)
  Receive Date: 20240425
  Receipt Date: 20240425
  Transmission Date: 20240716
  Serious: Yes (Hospitalization)
  Sender: FDA-Public Use
  Company Number: US-MYLANLABS-2024M1036618

PATIENT
  Age: 80 Year
  Sex: Male

DRUGS (2)
  1. CARBIDOPA\LEVODOPA [Suspect]
     Active Substance: CARBIDOPA\LEVODOPA
     Indication: Parkinson^s disease
     Dosage: 1 DOSAGE FORM, Q6H
     Route: 065
  2. TORSEMIDE [Suspect]
     Active Substance: TORSEMIDE
     Indication: Angiopathy
     Dosage: UNK
     Route: 065

REACTIONS (6)
  - Encephalopathy [Recovered/Resolved]
  - Hyperventilation [Unknown]
  - Hypovolaemia [Unknown]
  - Respiratory alkalosis [Unknown]
  - Metabolic alkalosis [Unknown]
  - Off label use [Unknown]
